FAERS Safety Report 13468013 (Version 1)
Quarter: 2017Q2

REPORT INFORMATION
  Report Type: Spontaneous
  Country: BR (occurrence: BR)
  Receive Date: 20170421
  Receipt Date: 20170421
  Transmission Date: 20170830
  Serious: Yes (Hospitalization, Other)
  Sender: FDA-Public Use
  Company Number: BR-BIOMARINAP-BR-2017-113720

PATIENT
  Sex: Female
  Weight: 14.4 kg

DRUGS (1)
  1. NAGLAZYME [Suspect]
     Active Substance: GALSULFASE
     Indication: MUCOPOLYSACCHARIDOSIS VI
     Dosage: 15 MG, QW
     Route: 042
     Dates: start: 20080918

REACTIONS (8)
  - Fall [Unknown]
  - Movement disorder [Unknown]
  - Head injury [Unknown]
  - Syncope [Unknown]
  - Sinusitis [Unknown]
  - Sensory loss [Unknown]
  - Haemorrhage [Unknown]
  - Walking disability [Unknown]
